FAERS Safety Report 18473616 (Version 1)
Quarter: 2020Q4

REPORT INFORMATION
  Report Type: Spontaneous
  Country: JP (occurrence: JP)
  Receive Date: 20201106
  Receipt Date: 20201106
  Transmission Date: 20210114
  Serious: Yes (Hospitalization, Other)
  Sender: FDA-Public Use
  Company Number: JP-ELI_LILLY_AND_COMPANY-JP202010002880

PATIENT
  Age: 87 Year
  Sex: Male

DRUGS (6)
  1. CELECOX [Suspect]
     Active Substance: CELECOXIB
     Indication: PRODUCT USED FOR UNKNOWN INDICATION
     Dosage: 200 MG, DAILY
     Route: 048
     Dates: start: 20200425, end: 20200911
  2. DULOXETINE HYDROCHLORIDE. [Suspect]
     Active Substance: DULOXETINE HYDROCHLORIDE
     Indication: BACK PAIN
     Dosage: 20 MG, DAILY
     Route: 048
     Dates: start: 20200820, end: 20200902
  3. DULOXETINE HYDROCHLORIDE. [Suspect]
     Active Substance: DULOXETINE HYDROCHLORIDE
     Indication: SPINAL OSTEOARTHRITIS
     Dosage: 40 MG, DAILY
     Route: 048
     Dates: start: 20200903, end: 20200911
  4. LOXONIN [Concomitant]
     Active Substance: LOXOPROFEN SODIUM
     Route: 062
  5. MUCOSTA [Concomitant]
     Active Substance: REBAMIPIDE
     Dosage: 200 MG, DAILY
     Route: 048
     Dates: start: 20200425, end: 20200911
  6. SAMSCA [Concomitant]
     Active Substance: TOLVAPTAN

REACTIONS (3)
  - Off label use [Unknown]
  - Prerenal failure [Recovering/Resolving]
  - Cardiac failure [Recovering/Resolving]

NARRATIVE: CASE EVENT DATE: 20200826
